FAERS Safety Report 8956213 (Version 1)
Quarter: 2012Q4

REPORT INFORMATION
  Report Type: 
  Country: US (occurrence: US)
  Receive Date: 20121210
  Receipt Date: 20121210
  Transmission Date: 20130627
  Serious: Yes (Other)
  Sender: FDA-Public Use
  Company Number: PHEH2012US024053

PATIENT
  Sex: Female

DRUGS (1)
  1. MYFORTIC [Suspect]
     Indication: RENAL TRANSPLANT
     Dosage: UNK UKN, BID
     Route: 048
     Dates: start: 20120621

REACTIONS (1)
  - Renal impairment [Unknown]
